FAERS Safety Report 6642612-0 (Version None)
Quarter: 2010Q1

REPORT INFORMATION
  Report Type: 
  Country: None (occurrence: None)
  Receive Date: 20100319
  Receipt Date: 20100317
  Transmission Date: 20100710
  Serious: Yes (Hospitalization, Disabling)
  Sender: FDA-Public Use
  Company Number: US-MERCK-1001USA00054

PATIENT
  Age: 79 Year
  Sex: Female

DRUGS (5)
  1. FOSAMAX [Suspect]
     Indication: OSTEOPOROSIS
     Route: 048
     Dates: start: 19980101, end: 20070101
  2. FOSAMAX [Suspect]
     Route: 048
     Dates: start: 19980101, end: 20040101
  3. FOSAMAX [Suspect]
     Route: 048
     Dates: start: 20040101, end: 20080101
  4. ATENOLOL [Concomitant]
     Route: 065
     Dates: start: 19960101
  5. COSOPT [Concomitant]
     Route: 065
     Dates: start: 19960101

REACTIONS (13)
  - ANXIETY [None]
  - CATARACT [None]
  - CORONARY ARTERY DISEASE [None]
  - DEPRESSION [None]
  - FALL [None]
  - FEMUR FRACTURE [None]
  - HAEMORRHOIDS [None]
  - KYPHOSIS [None]
  - LOW TURNOVER OSTEOPATHY [None]
  - LUNG DISORDER [None]
  - NORMOCHROMIC NORMOCYTIC ANAEMIA [None]
  - RENAL CYST [None]
  - UMBILICAL HERNIA [None]
